FAERS Safety Report 4319029-7 (Version None)
Quarter: 2004Q1

REPORT INFORMATION
  Report Type: 
  Country: None (occurrence: None)
  Receive Date: 20040316
  Receipt Date: 20040304
  Transmission Date: 20041129
  Serious: Yes (Death, Life-Threatening, Hospitalization, Disabling)
  Sender: FDA-Public Use
  Company Number: 04P-020-0252582-00

PATIENT
  Age: 28 Year
  Sex: Female
  Weight: 53 kg

DRUGS (7)
  1. KALETRA [Suspect]
     Indication: HIV INFECTION
     Dosage: 3 CAPSULE, 2 IN 1 D, PER ORAL
     Route: 048
     Dates: start: 20030522, end: 20030806
  2. RIFAMPICIN [Suspect]
     Indication: TUBERCULOSIS
     Dosage: 600 MG, 2 IN 1 D, PER ORAL
     Route: 048
     Dates: start: 20030524, end: 20030703
  3. ISONIAZID [Suspect]
     Indication: TUBERCULOSIS
     Dosage: 400 MG, 2 IN 1 D, PER ORAL
     Route: 048
     Dates: start: 20030524, end: 20030703
  4. ETHAMBUTOL HCL [Suspect]
     Indication: TUBERCULOSIS
     Dosage: 300 MG, 3 IN 1 D, PER ORAL
     Route: 048
     Dates: start: 20030524, end: 20030703
  5. PYRAZINAMIDE [Suspect]
     Indication: TUBERCULOSIS
     Dosage: 100 MG, 1 IN 1 D, PER ORAL
     Route: 048
     Dates: start: 20030523, end: 20030703
  6. FLUCONAZOLE [Suspect]
     Indication: FUNGAL INFECTION
     Dosage: 100 MG, PER ORAL
     Route: 048
  7. BACTRIM [Concomitant]

REACTIONS (4)
  - DRUG INTERACTION [None]
  - PANCREATITIS ACUTE [None]
  - PULMONARY TUBERCULOSIS [None]
  - SEPTIC SHOCK [None]
